FAERS Safety Report 15533003 (Version 2)
Quarter: 2018Q4

REPORT INFORMATION
  Report Type: Spontaneous
  Country: US (occurrence: US)
  Receive Date: 20181019
  Receipt Date: 20181128
  Transmission Date: 20190205
  Serious: Yes (Other)
  Sender: FDA-Public Use
  Company Number: US-SA-2018SA286503

PATIENT
  Age: 64 Year
  Sex: Female

DRUGS (2)
  1. LANTUS [Suspect]
     Active Substance: INSULIN GLARGINE
     Dosage: 59 IU
     Route: 065
     Dates: start: 20180903
  2. LANTUS [Suspect]
     Active Substance: INSULIN GLARGINE
     Indication: TYPE 2 DIABETES MELLITUS
     Dosage: 61 DF, QD
     Dates: start: 20180903

REACTIONS (7)
  - Injection site pain [Unknown]
  - Thrombosis [Unknown]
  - Injection site haemorrhage [Unknown]
  - Pancreatic disorder [Unknown]
  - Blood glucose abnormal [Unknown]
  - Injection site pain [Unknown]
  - Hepatic cirrhosis [Unknown]

NARRATIVE: CASE EVENT DATE: 20181001
